FAERS Safety Report 17585148 (Version 2)
Quarter: 2020Q1

REPORT INFORMATION
  Report Type: Spontaneous
  Country: IT (occurrence: IT)
  Receive Date: 20200326
  Receipt Date: 20200327
  Transmission Date: 20200409
  Serious: Yes (Other)
  Sender: FDA-Public Use
  Company Number: IT-CELGENEUS-ITA-20200308176

PATIENT
  Age: 63 Year
  Sex: Female

DRUGS (4)
  1. REVLIMID [Suspect]
     Active Substance: LENALIDOMIDE
     Indication: PLASMA CELL MYELOMA
     Route: 048
     Dates: start: 20190515, end: 20190613
  2. DESAMETASONE [Concomitant]
     Active Substance: DEXAMETHASONE
     Indication: PRODUCT USED FOR UNKNOWN INDICATION
     Route: 048
     Dates: start: 20190515, end: 20190814
  3. LASIX [Concomitant]
     Active Substance: FUROSEMIDE
     Indication: CARDIOMYOPATHY
     Dosage: DOSE NOT PROVIDED
     Route: 048
  4. KYPROLIS [Concomitant]
     Active Substance: CARFILZOMIB
     Indication: PLASMA CELL MYELOMA
     Route: 058
     Dates: start: 20190515, end: 20190814

REACTIONS (2)
  - Peripheral artery thrombosis [Recovered/Resolved]
  - Peripheral swelling [Recovered/Resolved]

NARRATIVE: CASE EVENT DATE: 20190613
